FAERS Safety Report 13065802 (Version 1)
Quarter: 2016Q4

REPORT INFORMATION
  Report Type: Spontaneous
  Country: US (occurrence: US)
  Receive Date: 20161227
  Receipt Date: 20161227
  Transmission Date: 20170207
  Serious: Yes (Other)
  Sender: FDA-Public Use
  Company Number: US-PFIZER INC-2016596762

PATIENT

DRUGS (2)
  1. NORMAL SALINE [Suspect]
     Active Substance: SODIUM CHLORIDE
     Indication: IRRIGATION THERAPY
  2. BACITRACIN. [Suspect]
     Active Substance: BACITRACIN
     Indication: IRRIGATION THERAPY
     Dosage: 50000 IU, UNK(50,000 UNITS TOPICALLY APPLIED TO THE SURGICAL FIELD)

REACTIONS (4)
  - Product colour issue [Unknown]
  - Postoperative wound infection [Unknown]
  - Incorrect route of drug administration [Unknown]
  - Poor quality drug administered [Unknown]
